FAERS Safety Report 9410698 (Version 1)
Quarter: 2013Q2

REPORT INFORMATION
  Report Type: Spontaneous
  Country: US (occurrence: None)
  Receive Date: 20130424
  Receipt Date: 20130424
  Transmission Date: 20140414
  Serious: Yes (Hospitalization)
  Sender: FDA-Public Use
  Company Number: DSU-2013-02926

PATIENT
  Age: 64 Year
  Sex: Male

DRUGS (1)
  1. OLMESARTAN (OLMESARTAN) (TABLET) (OLMESARTAN) [Suspect]
     Indication: HYPERTENSION
     Route: 048

REACTIONS (5)
  - Diarrhoea [None]
  - Abdominal distension [None]
  - Orthostatic hypotension [None]
  - Azotaemia [None]
  - Dehydration [None]
